FAERS Safety Report 10299291 (Version 4)
Quarter: 2015Q4

REPORT INFORMATION
  Report Type: Spontaneous
  Country: US (occurrence: US)
  Receive Date: 20140711
  Receipt Date: 20151116
  Transmission Date: 20160304
  Serious: No
  Sender: FDA-Public Use
  Company Number: US-PFIZER INC-2014189551

PATIENT
  Age: 58 Year
  Sex: Female
  Weight: 161.9 kg

DRUGS (27)
  1. DOC-Q-LAX [Concomitant]
     Dosage: 1 DF, AS NEEDED ((.6-50 MG 1 TABLET IN THE EVENING AS NEEDED )
     Route: 048
  2. METHADONE HCL [Concomitant]
     Active Substance: METHADONE HYDROCHLORIDE
     Dosage: 20 MG, 1X/DAY (10 MG 2 TABLET ORALLY ONCE A DAY)
     Route: 048
  3. OMEPRAZOLE. [Concomitant]
     Active Substance: OMEPRAZOLE
     Dosage: 40 MG, 2X/DAY
     Route: 048
  4. NOVOLOG [Concomitant]
     Active Substance: INSULIN ASPART
     Dosage: UNK (100 UNIT /ML AS DIRECTED SUBCUTANEOUS 2 TIMES A DAY)
     Route: 058
  5. ASPIRIN. [Concomitant]
     Active Substance: ASPIRIN
     Dosage: 81 MG, 1X/DAY
     Route: 048
  6. SPIRONOLACTONE. [Concomitant]
     Active Substance: SPIRONOLACTONE
     Dosage: 50 MG, 1X/DAY
     Route: 048
  7. MAGNESIUM [Concomitant]
     Active Substance: MAGNESIUM
     Dosage: 500 MG, 1X/DAY
     Route: 048
  8. HYDROMORPHONE HCL [Concomitant]
     Active Substance: HYDROMORPHONE HYDROCHLORIDE
     Dosage: 4 MG, AS NEEDED (4 MG 1 TABLET AS NEEDED ORALLY EVERY 6 HRS)
     Route: 048
  9. LEVOTHYROXINE SODIUM. [Concomitant]
     Active Substance: LEVOTHYROXINE SODIUM
     Dosage: 75 ?G, 1X/DAY
     Route: 048
  10. LAMOTRIGINE. [Concomitant]
     Active Substance: LAMOTRIGINE
     Dosage: 25 MG, 2X/DAY
     Route: 048
  11. TRAMADOL HCL [Concomitant]
     Active Substance: TRAMADOL HYDROCHLORIDE
     Dosage: 50 MG, AS NEEDED (50 MG 1 TABLET AS NEEDED ORALLY EVERY 8 HRS)
     Route: 048
  12. SERTRALINE HCL [Concomitant]
     Active Substance: SERTRALINE HYDROCHLORIDE
     Dosage: 75 MG, 1X/DAY (50 MG I,S TABLET ORALLY ONCE A DAY)
     Route: 048
  13. LANTUS [Concomitant]
     Active Substance: INSULIN GLARGINE
     Dosage: 0.2 ML, 2X/DAY
     Route: 058
  14. LINZESS [Concomitant]
     Active Substance: LINACLOTIDE
     Dosage: 145 ?G, 1X/DAY
     Route: 048
  15. METOLAZONE. [Concomitant]
     Active Substance: METOLAZONE
     Dosage: 5 MG, 1X/DAY
     Route: 048
  16. VITAMIN D3 [Concomitant]
     Active Substance: CHOLECALCIFEROL
     Dosage: UNK UNK, 1X/DAY
     Route: 048
  17. BUMETANIDE. [Concomitant]
     Active Substance: BUMETANIDE
     Dosage: 2 MG, 1X/DAY
     Route: 048
  18. BACLOFEN. [Concomitant]
     Active Substance: BACLOFEN
     Dosage: UNK, 1X/DAY
  19. ULORIC [Concomitant]
     Active Substance: FEBUXOSTAT
     Dosage: 40 MG, 1X/DAY
     Route: 048
  20. LYRICA [Suspect]
     Active Substance: PREGABALIN
     Indication: DIABETIC NEUROPATHY
     Dosage: (THREE 50MG CAPSULES IN MORNING AND TWO 50MG CAPSULES AT NIGHT)
     Route: 048
     Dates: start: 201312, end: 20140701
  21. LYRICA [Suspect]
     Active Substance: PREGABALIN
     Dosage: 250 MG, UNK (50 MG 3 CAPSULES IN THE MORNING AND 2 CAPSULES AT BEDTIME)
  22. SIMVASTATIN. [Concomitant]
     Active Substance: SIMVASTATIN
     Dosage: 10 MG, 1X/DAY (1 TABLET IU TBE EVENING)
     Route: 048
  23. QUETIAPINE FUMARATE. [Concomitant]
     Active Substance: QUETIAPINE FUMARATE
     Dosage: 200 MG, 1X/DAY (AT BEDTIME)
     Route: 048
  24. LYRICA [Suspect]
     Active Substance: PREGABALIN
     Indication: NEUROPATHY PERIPHERAL
     Dosage: 150 MG, 2X/DAY
     Route: 048
  25. AMLODIPINE BESYLATE. [Concomitant]
     Active Substance: AMLODIPINE BESYLATE
     Dosage: 10 MG, 1X/DAY
     Route: 048
  26. LISINOPRIL. [Concomitant]
     Active Substance: LISINOPRIL
     Dosage: 2.5 MG, 1X/DAY
     Route: 048
  27. POTASSIUM [Concomitant]
     Active Substance: POTASSIUM
     Dosage: 75 MG, 1X/DAY
     Route: 048

REACTIONS (6)
  - Skin ulcer [Unknown]
  - Pain in extremity [Unknown]
  - Peripheral swelling [Unknown]
  - Pain [Unknown]
  - Blood test abnormal [Unknown]
  - Pain [Unknown]

NARRATIVE: CASE EVENT DATE: 201407
